FAERS Safety Report 5202948-7 (Version None)
Quarter: 2006Q4

REPORT INFORMATION
  Report Type: 
  Country: None (occurrence: None)
  Receive Date: 20061018
  Receipt Date: 20051020
  Transmission Date: 20070319
  Serious: Yes (Other)
  Sender: FDA-Public Use
  Company Number: PHEH2005US11715

PATIENT
  Age: 81 Year
  Sex: Female

DRUGS (1)
  1. ZOMETA [Suspect]
     Indication: MULTIPLE MYELOMA
     Dosage: UNK, MONTHLY, INTRAVENOUS
     Route: 042
     Dates: end: 20050801

REACTIONS (2)
  - BLOOD CREATINE INCREASED [None]
  - DRUG ADMINISTRATION ERROR [None]
